FAERS Safety Report 6832494-6 (Version None)
Quarter: 2010Q3

REPORT INFORMATION
  Report Type: 
  Country: None (occurrence: None)
  Receive Date: 20100712
  Receipt Date: 20100628
  Transmission Date: 20110219
  Serious: Yes (Hospitalization)
  Sender: FDA-Public Use
  Company Number: GB-MYLANLABS-2010S1011626

PATIENT
  Age: 32 Year
  Sex: Male

DRUGS (5)
  1. DILTIAZEM [Suspect]
     Indication: DRESSLER'S SYNDROME
     Route: 048
     Dates: start: 20100512, end: 20100526
  2. ASPIRIN [Concomitant]
     Indication: DRESSLER'S SYNDROME
     Route: 048
     Dates: start: 20090101
  3. BISOPROLOL [Concomitant]
     Indication: DRESSLER'S SYNDROME
     Route: 048
     Dates: start: 20090101, end: 20100512
  4. CLOPIDOGREL [Concomitant]
     Indication: DRESSLER'S SYNDROME
     Route: 048
     Dates: start: 20090101
  5. RAMIPRIL [Concomitant]
     Indication: DRESSLER'S SYNDROME
     Route: 048
     Dates: start: 20090101

REACTIONS (2)
  - ACUTE GENERALISED EXANTHEMATOUS PUSTULOSIS [None]
  - NEUTROPENIA [None]
